FAERS Safety Report 7241713-6 (Version None)
Quarter: 2011Q1

REPORT INFORMATION
  Report Type: 
  Country: None (occurrence: None)
  Receive Date: 20110124
  Receipt Date: 20110117
  Transmission Date: 20110831
  Serious: Yes (Death)
  Sender: FDA-Public Use
  Company Number: PHHY2011JP03377

PATIENT
  Age: 22 Year
  Sex: Female

DRUGS (6)
  1. PHENOTHIAZINE [Suspect]
  2. FLUVOXAMINE MALEATE [Suspect]
  3. ZOLPIDEM TARTRATE [Suspect]
  4. CARBAMAZEPINE [Suspect]
  5. CHLORAL HYDRATE [Suspect]
  6. BROMVALERYLUREA [Suspect]

REACTIONS (1)
  - TOXICITY TO VARIOUS AGENTS [None]
